FAERS Safety Report 7269647-1 (Version None)
Quarter: 2011Q1

REPORT INFORMATION
  Report Type: 
  Country: None (occurrence: None)
  Receive Date: 20110202
  Receipt Date: 20110131
  Transmission Date: 20110831
  Serious: Yes (Death, Other)
  Sender: FDA-Public Use
  Company Number: JP-SANOFI-AVENTIS-2010SA075149

PATIENT
  Age: 76 Year
  Sex: Male
  Weight: 47 kg

DRUGS (25)
  1. TAXOTERE [Suspect]
     Route: 041
     Dates: start: 20090819, end: 20090819
  2. GRANISETRON HCL [Concomitant]
     Route: 041
     Dates: start: 20090819, end: 20090819
  3. AMARYL [Concomitant]
     Route: 048
  4. MELBIN [Concomitant]
     Route: 048
     Dates: start: 20090812
  5. TAXOTERE [Suspect]
     Indication: NON-SMALL CELL LUNG CANCER STAGE III
     Route: 041
     Dates: start: 20090701, end: 20090701
  6. PARULEON [Concomitant]
     Route: 048
  7. MUCOSTA [Concomitant]
     Dates: start: 20090812
  8. LASIX [Concomitant]
     Route: 048
     Dates: start: 20090815
  9. LOXONIN [Concomitant]
     Route: 048
     Dates: start: 20090818
  10. DEXAMETHASONE SODIUM PHOSPHATE [Concomitant]
     Route: 041
     Dates: start: 20090819, end: 20090819
  11. GRANISETRON HCL [Concomitant]
     Route: 041
     Dates: start: 20090722, end: 20090722
  12. PLAVIX [Concomitant]
     Route: 048
  13. GASLON [Concomitant]
     Route: 048
  14. METFORMIN HCL [Concomitant]
     Route: 048
  15. TAXOTERE [Suspect]
     Route: 041
     Dates: start: 20090722, end: 20090722
  16. NU-LOTAN [Concomitant]
     Route: 048
  17. WARFARIN [Concomitant]
     Route: 048
  18. DEXAMETHASONE SODIUM PHOSPHATE [Concomitant]
     Route: 041
     Dates: start: 20090701, end: 20090819
  19. DEXAMETHASONE SODIUM PHOSPHATE [Concomitant]
     Route: 041
     Dates: start: 20090722, end: 20090722
  20. GRANISETRON HCL [Concomitant]
     Route: 041
     Dates: start: 20090701, end: 20090701
  21. ITAVASTATIN [Concomitant]
     Route: 048
  22. MIGLITOL [Concomitant]
     Route: 048
  23. BASEN [Concomitant]
     Dates: start: 20090812
  24. ASPIRIN [Concomitant]
     Route: 048
  25. MEVALOTIN [Concomitant]
     Route: 048
     Dates: start: 20090812

REACTIONS (3)
  - RESPIRATORY FAILURE [None]
  - PNEUMONIA [None]
  - INTERSTITIAL LUNG DISEASE [None]
